FAERS Safety Report 5018643-3 (Version None)
Quarter: 2006Q2

REPORT INFORMATION
  Report Type: 
  Country: None (occurrence: None)
  Receive Date: 20060414
  Receipt Date: 20051231
  Transmission Date: 20061013
  Serious: No
  Sender: FDA-Public Use
  Company Number: 2006SP000044

PATIENT
  Age: 60 Year
  Sex: Male
  Weight: 95.2554 kg

DRUGS (6)
  1. LUNESTA [Suspect]
     Indication: SLEEP DISORDER
     Dosage: 2 MG;PRN;ORAL
     Route: 048
     Dates: start: 20051230
  2. AVALIDE [Concomitant]
  3. AVAPRO [Concomitant]
  4. VERELAN PM [Concomitant]
  5. FLOMAX ^CSL^ [Concomitant]
  6. HYDROCODONE [Concomitant]

REACTIONS (1)
  - DYSGEUSIA [None]
